FAERS Safety Report 21239004 (Version 1)
Quarter: 2022Q3

REPORT INFORMATION
  Report Type: Spontaneous
  Country: IN (occurrence: IN)
  Receive Date: 20220822
  Receipt Date: 20220822
  Transmission Date: 20221027
  Serious: Yes (Other)
  Sender: FDA-Public Use
  Company Number: IN-PFIZER INC-PV202200044100

PATIENT
  Age: 63 Year
  Sex: Female

DRUGS (2)
  1. PALBOCICLIB [Suspect]
     Active Substance: PALBOCICLIB
     Dosage: 125 MG, 1X/DAY
     Route: 048
     Dates: start: 20210619
  2. FASLODEX [Suspect]
     Active Substance: FULVESTRANT

REACTIONS (6)
  - Cardiac tamponade [Unknown]
  - Pericardial effusion [Recovered/Resolved]
  - Dysphonia [Unknown]
  - Weight decreased [Unknown]
  - Central auditory processing disorder [Unknown]
  - Neoplasm progression [Unknown]

NARRATIVE: CASE EVENT DATE: 20220201
